FAERS Safety Report 18622401 (Version 2)
Quarter: 2020Q4

REPORT INFORMATION
  Report Type: Spontaneous
  Country: AR (occurrence: AR)
  Receive Date: 20201216
  Receipt Date: 20201228
  Transmission Date: 20210114
  Serious: Yes (Hospitalization)
  Sender: FDA-Public Use
  Company Number: AR-PFIZER INC-2020496526

PATIENT
  Age: 67 Year
  Sex: Male

DRUGS (1)
  1. LORLATINIB [Suspect]
     Active Substance: LORLATINIB
     Dosage: UNK

REACTIONS (4)
  - Diabetes mellitus inadequate control [Recovering/Resolving]
  - Bacterial infection [Unknown]
  - Blood pressure increased [Unknown]
  - Pneumonia [Unknown]
